FAERS Safety Report 7509442-9 (Version None)
Quarter: 2011Q2

REPORT INFORMATION
  Report Type: 
  Country: None (occurrence: None)
  Receive Date: 20110519
  Receipt Date: 20110505
  Transmission Date: 20111010
  Serious: Yes (Hospitalization, Other)
  Sender: FDA-Public Use
  Company Number: 2011MA005434

PATIENT
  Age: 17 Year
  Sex: Female

DRUGS (4)
  1. ANTIDEPRESSANTS (ANTIDEPRESSANTS) [Suspect]
  2. CARBAMAZEPINE [Suspect]
     Indication: SUICIDE ATTEMPT
     Dosage: 16000 MG; 1X; PO
     Route: 048
  3. ANALGESICS (ANALGESICS) [Suspect]
  4. MYORELAX (MYORELAX) [Suspect]

REACTIONS (5)
  - LOSS OF CONSCIOUSNESS [None]
  - COMA [None]
  - MULTIPLE DRUG OVERDOSE INTENTIONAL [None]
  - CONTINUOUS HAEMODIAFILTRATION [None]
  - BODY TEMPERATURE DECREASED [None]
